FAERS Safety Report 19408549 (Version 1)
Quarter: 2021Q2

REPORT INFORMATION
  Report Type: Spontaneous
  Country: NL (occurrence: NL)
  Receive Date: 20210612
  Receipt Date: 20210612
  Transmission Date: 20210717
  Serious: Yes (Other)
  Sender: FDA-Public Use
  Company Number: NL-TEVA-2021-NL-1921120

PATIENT
  Age: 58 Year
  Sex: Male
  Weight: 85 kg

DRUGS (1)
  1. SOLIFENACINE TABLET 10MG / BRAND NAME NOT SPECIFIED [Suspect]
     Active Substance: SOLIFENACIN
     Indication: DYSURIA
     Dosage: 10 MILLIGRAM DAILY;  THERAPY END DATE :ASKU
     Dates: start: 202105

REACTIONS (1)
  - Erectile dysfunction [Not Recovered/Not Resolved]
